FAERS Safety Report 25263138 (Version 2)
Quarter: 2025Q2

REPORT INFORMATION
  Report Type: Spontaneous
  Country: FR (occurrence: FR)
  Receive Date: 20250502
  Receipt Date: 20250505
  Transmission Date: 20250717
  Serious: Yes (Life-Threatening, Hospitalization)
  Sender: GUERBET
  Company Number: FR-GUERBETG-FR-20250176

PATIENT
  Age: 63 Year
  Sex: Female

DRUGS (1)
  1. OPTIRAY 350 [Suspect]
     Active Substance: IOVERSOL
     Indication: Computerised tomogram
     Dates: start: 20250407, end: 20250407

REACTIONS (1)
  - Cardio-respiratory distress [Recovered/Resolved]

NARRATIVE: CASE EVENT DATE: 20250407
